FAERS Safety Report 19483357 (Version 3)
Quarter: 2021Q4

REPORT INFORMATION
  Report Type: Spontaneous
  Country: ES (occurrence: ES)
  Receive Date: 20210701
  Receipt Date: 20211022
  Transmission Date: 20220303
  Serious: Yes (Other)
  Sender: FDA-Public Use
  Company Number: NVSC2021ES060443

PATIENT
  Age: 43 Year
  Sex: Female

DRUGS (10)
  1. METHOTREXATE [Suspect]
     Active Substance: METHOTREXATE
     Indication: Product used for unknown indication
     Dosage: UNK
     Route: 065
  2. BARICITINIB [Suspect]
     Active Substance: BARICITINIB
     Indication: Rheumatoid arthritis
     Dosage: 4 MG
     Route: 048
     Dates: start: 20190402
  3. BARICITINIB [Suspect]
     Active Substance: BARICITINIB
     Dosage: 4 MG
     Route: 048
  4. BARICITINIB [Suspect]
     Active Substance: BARICITINIB
     Dosage: 4 MG
     Route: 048
  5. BARICITINIB [Suspect]
     Active Substance: BARICITINIB
     Dosage: 4 MG
     Route: 048
  6. BARICITINIB [Suspect]
     Active Substance: BARICITINIB
     Dosage: 4 MG
     Route: 048
  7. PREDNISONE [Concomitant]
     Active Substance: PREDNISONE
     Indication: Product used for unknown indication
     Dosage: UNK
     Route: 065
  8. ARCOXIA [Concomitant]
     Active Substance: ETORICOXIB
     Indication: Product used for unknown indication
     Dosage: UNK
     Route: 065
  9. IBUPROFEN [Concomitant]
     Active Substance: IBUPROFEN
     Indication: Product used for unknown indication
     Dosage: UNK
     Route: 065
  10. ACETAMINOPHEN [Concomitant]
     Active Substance: ACETAMINOPHEN
     Indication: Product used for unknown indication
     Dosage: UNK
     Route: 065

REACTIONS (14)
  - Rheumatoid arthritis [Recovered/Resolved]
  - Rheumatoid arthritis [Recovering/Resolving]
  - Anal fissure [Not Recovered/Not Resolved]
  - Musculoskeletal disorder [Recovered/Resolved]
  - Oral herpes [Recovering/Resolving]
  - Bone fissure [Recovering/Resolving]
  - Gait disturbance [Recovering/Resolving]
  - Sacral pain [Recovering/Resolving]
  - Arthropathy [Unknown]
  - Tendon pain [Recovering/Resolving]
  - Arthralgia [Recovered/Resolved]
  - Arthralgia [Recovering/Resolving]
  - Pain in extremity [Recovering/Resolving]
  - Pain in extremity [Not Recovered/Not Resolved]

NARRATIVE: CASE EVENT DATE: 20190401
